FAERS Safety Report 10658198 (Version 1)
Quarter: 2014Q4

REPORT INFORMATION
  Report Type: Spontaneous
  Country: US (occurrence: None)
  Receive Date: 20141205
  Receipt Date: 20141205
  Transmission Date: 20150529
  Serious: Yes (Other)
  Sender: FDA-Public Use
  Company Number: 163-POMAL-14090467

PATIENT
  Age: 49 Year
  Sex: Female
  Weight: 54.4 kg

DRUGS (3)
  1. VALREX (UNKNOWN) [Concomitant]
  2. POMALYST [Suspect]
     Active Substance: POMALIDOMIDE
     Indication: PLASMA CELL MYELOMA
     Dosage: 2 MG, 1 IN 1 D, PO
     Route: 048
     Dates: start: 20130730
  3. SEPTRA (BACTRIM) (UNKNOWN) [Concomitant]

REACTIONS (1)
  - Inappropriate schedule of drug administration [None]
